FAERS Safety Report 13022667 (Version 2)
Quarter: 2016Q4

REPORT INFORMATION
  Report Type: Report from Study
  Country: IT (occurrence: IT)
  Receive Date: 20161213
  Receipt Date: 20161228
  Transmission Date: 20170207
  Serious: Yes (Other)
  Sender: FDA-Public Use
  Company Number: IT-TEVA-718059ACC

PATIENT
  Age: 79 Year
  Sex: Male

DRUGS (1)
  1. BICALUTAMIDE TEVA - TEVA ITALIA S.R.L. [Suspect]
     Active Substance: BICALUTAMIDE
     Indication: PROSTATE CANCER
     Dosage: 50 MILLIGRAM DAILY;
     Route: 048
     Dates: start: 20161114, end: 20161129

REACTIONS (2)
  - Abscess of salivary gland [Recovered/Resolved]
  - Lip oedema [Recovered/Resolved]

NARRATIVE: CASE EVENT DATE: 20161129
